FAERS Safety Report 7806448-7 (Version None)
Quarter: 2011Q4

REPORT INFORMATION
  Report Type: 
  Country: None (occurrence: None)
  Receive Date: 20111011
  Receipt Date: 20111006
  Transmission Date: 20120403
  Serious: Yes (Hospitalization, Other)
  Sender: FDA-Public Use
  Company Number: US-PFIZER INC-2011128777

PATIENT
  Sex: Female

DRUGS (11)
  1. ACETAMINOPHEN AND HYDROCODONE BITARTRATE [Concomitant]
     Indication: PAIN
     Dosage: UNK
     Dates: start: 20020101, end: 20080101
  2. PROTONIX [Concomitant]
     Indication: GASTRIC ULCER
     Dosage: UNK
     Dates: start: 20040101, end: 20080101
  3. CHANTIX [Suspect]
     Indication: SMOKING CESSATION THERAPY
     Dosage: VARENICLINE BOX INCLUDING STARTER PACK AND THREE CONTINUING PACKS
     Dates: start: 20070201, end: 20070601
  4. CHANTIX [Suspect]
     Dosage: VARENICLINE BOX INCLUDING STARTER PACK AND THREE CONTINUING PACKS
     Dates: end: 20080101
  5. PROMETHAZINE [Concomitant]
     Indication: NAUSEA
     Dosage: UNK
     Dates: start: 20020101, end: 20090101
  6. AMBIEN [Concomitant]
     Indication: ANXIETY
  7. IBUPROFEN [Concomitant]
     Indication: PAIN
     Dosage: UNK
     Dates: start: 20050101, end: 20080101
  8. AMBIEN [Concomitant]
     Indication: SLEEP DISORDER
     Dosage: UNK
     Dates: start: 20020101, end: 20090101
  9. XANAX [Concomitant]
     Indication: ANXIETY
     Dosage: UNK
     Dates: start: 20030101, end: 20100101
  10. PROMETHAZINE [Concomitant]
     Indication: VOMITING
  11. BACTRIM [Concomitant]
     Indication: INFECTION
     Dosage: UNK
     Dates: start: 20050101, end: 20080101

REACTIONS (6)
  - SUICIDAL IDEATION [None]
  - PANIC ATTACK [None]
  - CONVULSION [None]
  - DEPRESSION [None]
  - INSOMNIA [None]
  - ANXIETY [None]
